FAERS Safety Report 18260535 (Version 1)
Quarter: 2020Q3

REPORT INFORMATION
  Report Type: Spontaneous
  Country: FR (occurrence: FR)
  Receive Date: 20200914
  Receipt Date: 20200914
  Transmission Date: 20201103
  Serious: Yes (Other)
  Sender: FDA-Public Use
  Company Number: FR-TEVA-2020-FR-1825689

PATIENT
  Age: 37 Year
  Sex: Male
  Weight: 96 kg

DRUGS (3)
  1. SERESTA [Concomitant]
     Active Substance: OXAZEPAM
     Dosage: UNIT DOSE 1DF
     Route: 048
  2. AMOXICILLINE [Suspect]
     Active Substance: AMOXICILLIN
     Indication: HEADACHE
     Dosage: UNIT DOSE 1DF
     Route: 048
     Dates: start: 2015, end: 2015
  3. ZOPICLONE [Concomitant]
     Active Substance: ZOPICLONE
     Dosage: UNIT DOSE 1DF
     Route: 048

REACTIONS (1)
  - Anaphylactoid reaction [Recovered/Resolved]

NARRATIVE: CASE EVENT DATE: 2015
